FAERS Safety Report 14460604 (Version 1)
Quarter: 2018Q1

REPORT INFORMATION
  Report Type: Spontaneous
  Country: US (occurrence: US)
  Receive Date: 20180130
  Receipt Date: 20180130
  Transmission Date: 20180509
  Serious: No
  Sender: FDA-Public Use
  Company Number: None

PATIENT
  Age: 71 Year
  Sex: Female
  Weight: 74.84 kg

DRUGS (19)
  1. L-CARLENANC [Concomitant]
  2. MAGNESIUM [Concomitant]
     Active Substance: MAGNESIUM
  3. HCTZ [Concomitant]
     Active Substance: HYDROCHLOROTHIAZIDE
  4. GUANFACINE. [Concomitant]
     Active Substance: GUANFACINE
  5. VITAMIN D3 [Concomitant]
     Active Substance: CHOLECALCIFEROL
  6. NITROFURANTOIN MONOHYDRATE MACROCRYSTALS [Suspect]
     Active Substance: NITROFURANTOIN\NITROFURANTOIN MONOHYDRATE
     Indication: URINARY TRACT INFECTION
     Route: 048
     Dates: start: 20180109, end: 20180120
  7. TYLENOL [Concomitant]
     Active Substance: ACETAMINOPHEN
  8. FLONASE [Concomitant]
     Active Substance: FLUTICASONE PROPIONATE
  9. STRESS B COMPLEX [Concomitant]
  10. CHROMIUM PICLONATE [Concomitant]
  11. ACCUPRIL [Concomitant]
     Active Substance: QUINAPRIL HYDROCHLORIDE
  12. 325 MG ASPIRIN [Concomitant]
  13. NIFEDIPINE ER 90MG KREMERS URBAN [Suspect]
     Active Substance: NIFEDIPINE
     Indication: HYPERTENSION
     Dosage: DOSE - 60 MG W/BR + 30 MG HS
     Route: 048
     Dates: start: 20170701, end: 20170824
  14. EYE DROPS [Concomitant]
     Active Substance: UNSPECIFIED INGREDIENT
  15. VITAMINS MULTIPLE [Concomitant]
  16. VITAMIN B12 [Concomitant]
     Active Substance: CYANOCOBALAMIN
  17. POTASSIUM GLUCONATE [Concomitant]
     Active Substance: POTASSIUM GLUCONATE
  18. MELATONIN [Concomitant]
     Active Substance: MELATONIN
  19. OSTEO BONE BUILDER CALCIUM [Concomitant]

REACTIONS (10)
  - Constipation [None]
  - Oedema peripheral [None]
  - Pollakiuria [None]
  - Mobility decreased [None]
  - Asthenia [None]
  - Disorientation [None]
  - Haematochezia [None]
  - Insomnia [None]
  - Fatigue [None]
  - Swelling [None]

NARRATIVE: CASE EVENT DATE: 20170701
